FAERS Safety Report 25343539 (Version 1)
Quarter: 2025Q2

REPORT INFORMATION
  Report Type: Spontaneous
  Country: US (occurrence: US)
  Receive Date: 20250521
  Receipt Date: 20250521
  Transmission Date: 20250717
  Serious: Yes (Other)
  Sender: BIOMARIN
  Company Number: US-BIOMARINAP-US-2025-166051

PATIENT

DRUGS (2)
  1. PALYNZIQ [Suspect]
     Active Substance: PEGVALIASE-PQPZ
     Indication: Product used for unknown indication
     Route: 065
  2. EMPAVELI [Suspect]
     Active Substance: PEGCETACOPLAN
     Indication: Product used for unknown indication
     Route: 065

REACTIONS (1)
  - Confusional state [Unknown]
